FAERS Safety Report 4717208-8 (Version None)
Quarter: 2005Q3

REPORT INFORMATION
  Report Type: 
  Country: None (occurrence: None)
  Receive Date: 20050712
  Receipt Date: 20050510
  Transmission Date: 20060218
  Serious: Yes (Other)
  Sender: FDA-Public Use
  Company Number: 2005073564

PATIENT
  Age: 56 Year
  Sex: Female
  Weight: 110.2241 kg

DRUGS (6)
  1. QUINAPRIL HCL [Suspect]
     Indication: HYPERTENSION
     Dosage: 10 MG (10 MG, 1 IN 1 D), ORAL
     Route: 048
     Dates: start: 20050111, end: 20050509
  2. QUINAPRIL HCL [Suspect]
     Indication: PROPHYLAXIS
     Dosage: 10 MG (10 MG, 1 IN 1 D), ORAL
     Route: 048
     Dates: start: 20050111, end: 20050509
  3. LASIX [Concomitant]
  4. VERAPAMIL SR (VERAPAMIL) [Concomitant]
  5. BENADRYL [Concomitant]
  6. LIPITOR [Concomitant]

REACTIONS (2)
  - ANGIONEUROTIC OEDEMA [None]
  - HYPERSENSITIVITY [None]
